FAERS Safety Report 25597769 (Version 2)
Quarter: 2025Q3

REPORT INFORMATION
  Report Type: Spontaneous
  Country: US (occurrence: US)
  Receive Date: 20250723
  Receipt Date: 20250925
  Transmission Date: 20251020
  Serious: Yes (Other)
  Sender: GLAXOSMITHKLINE
  Company Number: US-GLAXOSMITHKLINE INC-US2025AMR092623

PATIENT
  Sex: Female

DRUGS (2)
  1. BENLYSTA [Suspect]
     Active Substance: BELIMUMAB
     Indication: Systemic lupus erythematosus
     Dosage: 200 MG, WE, (1MLX4)
  2. BENLYSTA [Suspect]
     Active Substance: BELIMUMAB
     Indication: Lumbar radiculopathy

REACTIONS (2)
  - Systemic lupus erythematosus [Unknown]
  - Product use in unapproved indication [Unknown]
